FAERS Safety Report 6821096-3 (Version None)
Quarter: 2010Q3

REPORT INFORMATION
  Report Type: 
  Country: None (occurrence: None)
  Receive Date: 20100707
  Receipt Date: 20100625
  Transmission Date: 20110219
  Serious: Yes (Hospitalization, Other)
  Sender: FDA-Public Use
  Company Number: AU-GENENTECH-297890

PATIENT
  Sex: Male
  Weight: 70 kg

DRUGS (25)
  1. RITUXIMAB [Suspect]
     Indication: CHRONIC LYMPHOCYTIC LEUKAEMIA
     Dosage: 300 MG, UNK
     Route: 042
     Dates: start: 20100126, end: 20100126
  2. RITUXIMAB [Suspect]
     Indication: ANAEMIA HAEMOLYTIC AUTOIMMUNE
     Dosage: 300 MG, UNK
     Route: 042
     Dates: start: 20100127, end: 20100127
  3. RITUXIMAB [Suspect]
     Dosage: 641 MG, UNK
     Route: 042
     Dates: start: 20100208, end: 20100208
  4. CYCLOPHOSPHAMIDE [Concomitant]
     Indication: PRODUCT USED FOR UNKNOWN INDICATION
     Dosage: UNK
     Route: 042
     Dates: start: 20070101
  5. CYCLOPHOSPHAMIDE [Concomitant]
     Dosage: UNK
     Route: 042
     Dates: start: 20090501
  6. CYCLOPHOSPHAMIDE [Concomitant]
     Dosage: 400 MG/M2, UNK
     Route: 042
  7. CYCLOPHOSPHAMIDE [Concomitant]
     Dosage: 750 MG, UNK
     Route: 042
     Dates: start: 20100121
  8. PREDNISOLONE [Concomitant]
     Indication: PRODUCT USED FOR UNKNOWN INDICATION
     Dosage: UNK
  9. PREDNISOLONE [Concomitant]
     Dosage: 60 MG, UNK
  10. METHYLPREDNISOLONE [Concomitant]
     Indication: PRODUCT USED FOR UNKNOWN INDICATION
     Dosage: 250 MG, UNK
     Route: 042
  11. VINCRISTINE [Concomitant]
     Indication: PRODUCT USED FOR UNKNOWN INDICATION
     Dosage: 2 MG, UNK
     Route: 042
     Dates: start: 20100121
  12. CHLORAMBUCIL [Concomitant]
     Indication: PRODUCT USED FOR UNKNOWN INDICATION
     Dosage: UNK
  13. PROMETHAZINE [Concomitant]
     Indication: PREMEDICATION
  14. ACETAMINOPHEN [Concomitant]
     Indication: PREMEDICATION
  15. RANITIDINE [Concomitant]
     Indication: PREMEDICATION
  16. FAMOTIDINE [Concomitant]
     Indication: PREMEDICATION
  17. IMMUNE GLOBULIN IV NOS [Concomitant]
     Indication: PRODUCT USED FOR UNKNOWN INDICATION
     Dosage: 2 G/KG, UNK
  18. VITAMIN B-12 [Concomitant]
     Indication: PRODUCT USED FOR UNKNOWN INDICATION
  19. FOLIC ACID [Concomitant]
     Indication: PRODUCT USED FOR UNKNOWN INDICATION
  20. VITAMIN K TAB [Concomitant]
     Indication: PRODUCT USED FOR UNKNOWN INDICATION
  21. CALCIUM CARBONATE [Concomitant]
     Indication: PRODUCT USED FOR UNKNOWN INDICATION
  22. OMEPRAZOLE [Concomitant]
     Indication: PRODUCT USED FOR UNKNOWN INDICATION
  23. AUGMENTIN '125' [Concomitant]
     Indication: PRODUCT USED FOR UNKNOWN INDICATION
     Dosage: UNK
     Dates: start: 20100120, end: 20100124
  24. ACTRAPID [Concomitant]
     Indication: PRODUCT USED FOR UNKNOWN INDICATION
  25. MIXTARD HUMAN 70/30 [Concomitant]
     Indication: PRODUCT USED FOR UNKNOWN INDICATION

REACTIONS (6)
  - BLOOD BILIRUBIN INCREASED [None]
  - HAEMOLYSIS [None]
  - HEPATITIS CHOLESTATIC [None]
  - JAUNDICE CHOLESTATIC [None]
  - LYMPHOCYTE COUNT INCREASED [None]
  - PLEURAL EFFUSION [None]
